FAERS Safety Report 12768698 (Version 1)
Quarter: 2016Q3

REPORT INFORMATION
  Report Type: Spontaneous
  Country: US (occurrence: US)
  Receive Date: 20160921
  Receipt Date: 20160921
  Transmission Date: 20161109
  Serious: No
  Sender: FDA-Public Use
  Company Number: US-JAZZ-2016-US-010095

PATIENT
  Sex: Female

DRUGS (10)
  1. IMITREX [Concomitant]
     Active Substance: SUMATRIPTAN SUCCINATE
  2. ZOFRAN [Concomitant]
     Active Substance: ONDANSETRON HYDROCHLORIDE
  3. MODAFINIL. [Concomitant]
     Active Substance: MODAFINIL
  4. XYREM [Suspect]
     Active Substance: SODIUM OXYBATE
     Indication: NARCOLEPSY
     Dosage: 2 G, BID
     Route: 048
     Dates: start: 201510, end: 201510
  5. NUVIGIL [Concomitant]
     Active Substance: ARMODAFINIL
  6. IBUPROFEN. [Concomitant]
     Active Substance: IBUPROFEN
  7. SPRINTEC [Concomitant]
     Active Substance: ETHINYL ESTRADIOL\NORGESTIMATE
  8. AMITRIPTYLINE HCL [Concomitant]
     Active Substance: AMITRIPTYLINE
  9. XYREM [Suspect]
     Active Substance: SODIUM OXYBATE
     Dosage: 4 G, BID
     Route: 048
     Dates: start: 201601
  10. XYREM [Suspect]
     Active Substance: SODIUM OXYBATE
     Indication: CATAPLEXY
     Dosage: DOSE ADJUSTMENTS
     Route: 048
     Dates: start: 201510, end: 201601

REACTIONS (1)
  - Allergy to metals [Not Recovered/Not Resolved]
